FAERS Safety Report 15496498 (Version 3)
Quarter: 2019Q2

REPORT INFORMATION
  Report Type: Report from Study
  Country: None (occurrence: US)
  Receive Date: 20181013
  Receipt Date: 20190411
  Transmission Date: 20190711
  Serious: Yes (Other)
  Sender: FDA-Public Use
  Company Number: US-ABBVIE-18K-163-2318349-00

PATIENT
  Age: 68 Year
  Sex: Female

DRUGS (1)
  1. HUMIRA [Suspect]
     Active Substance: ADALIMUMAB
     Indication: RHEUMATOID ARTHRITIS
     Route: 058
     Dates: start: 20180405

REACTIONS (18)
  - Joint swelling [Not Recovered/Not Resolved]
  - Renal failure [Unknown]
  - Mobility decreased [Unknown]
  - Musculoskeletal discomfort [Not Recovered/Not Resolved]
  - Finger deformity [Not Recovered/Not Resolved]
  - Impaired self-care [Unknown]
  - Paraesthesia [Unknown]
  - Fatigue [Unknown]
  - Foot deformity [Not Recovered/Not Resolved]
  - Joint range of motion decreased [Unknown]
  - Joint stiffness [Not Recovered/Not Resolved]
  - Back pain [Not Recovered/Not Resolved]
  - Discomfort [Not Recovered/Not Resolved]
  - Gait disturbance [Not Recovered/Not Resolved]
  - Arthralgia [Not Recovered/Not Resolved]
  - Pain [Recovering/Resolving]
  - Grip strength decreased [Not Recovered/Not Resolved]
  - Anxiety [Unknown]

NARRATIVE: CASE EVENT DATE: 2018
